FAERS Safety Report 5935604-8 (Version None)
Quarter: 2008Q4

REPORT INFORMATION
  Report Type: 
  Country: None (occurrence: None)
  Receive Date: 20081030
  Receipt Date: 20081027
  Transmission Date: 20090506
  Serious: Yes (Other)
  Sender: FDA-Public Use
  Company Number: B0543986A

PATIENT
  Age: 26 Year
  Sex: Male

DRUGS (1)
  1. LAMICTAL [Suspect]
     Indication: DRUG USE FOR UNKNOWN INDICATION
     Dosage: 300MG PER DAY
     Route: 048
     Dates: start: 20080601, end: 20081001

REACTIONS (6)
  - CATARACT [None]
  - DRUG ADMINISTRATION ERROR [None]
  - INSOMNIA [None]
  - MUSCULOSKELETAL PAIN [None]
  - RASH [None]
  - SOMNOLENCE [None]
